FAERS Safety Report 14906436 (Version 5)
Quarter: 2019Q1

REPORT INFORMATION
  Report Type: Report from Study
  Country: GB (occurrence: GB)
  Receive Date: 20180517
  Receipt Date: 20190107
  Transmission Date: 20190417
  Serious: Yes (Other)
  Sender: FDA-Public Use
  Company Number: GB-BRISTOL-MYERS SQUIBB COMPANY-BMS-2018-042748

PATIENT
  Age: 61 Year
  Sex: Male

DRUGS (13)
  1. TRIAMCINOLONE ACETONIDE. [Suspect]
     Active Substance: TRIAMCINOLONE ACETONIDE
     Indication: ARTHRALGIA
     Dosage: UNK
     Route: 042
     Dates: start: 2005
  2. PREDNISOLONE. [Suspect]
     Active Substance: PREDNISOLONE
     Indication: PRODUCT USED FOR UNKNOWN INDICATION
     Dosage: 5 MG, QD
     Route: 065
     Dates: start: 1995
  3. CYCLOSPORIN [Suspect]
     Active Substance: CYCLOSPORINE
     Indication: PRODUCT USED FOR UNKNOWN INDICATION
     Dosage: 100 UNK, UNK
     Route: 065
  4. AZATHIOPRINE. [Suspect]
     Active Substance: AZATHIOPRINE
     Indication: IMMUNOSUPPRESSION
     Dosage: UNK
     Route: 065
     Dates: start: 1995
  5. DEPOMEDRONE [Suspect]
     Active Substance: METHYLPREDNISOLONE ACETATE
     Indication: MUSCULOSKELETAL STIFFNESS
     Route: 065
  6. DEPOMEDRONE [Suspect]
     Active Substance: METHYLPREDNISOLONE ACETATE
     Indication: OEDEMA PERIPHERAL
     Route: 065
  7. ETHAMBUTOL [Suspect]
     Active Substance: ETHAMBUTOL HYDROCHLORIDE
     Indication: MYCOBACTERIUM KANSASII INFECTION
     Dosage: 1000 MG, QD
     Route: 065
  8. PREDNISOLONE. [Suspect]
     Active Substance: PREDNISOLONE
     Indication: IMMUNOSUPPRESSION
     Dosage: 10 MG, QD
     Route: 065
     Dates: start: 1995
  9. DEPOMEDRONE [Suspect]
     Active Substance: METHYLPREDNISOLONE ACETATE
     Indication: ARTHRALGIA
     Dosage: UNK
     Route: 030
     Dates: start: 2005
  10. CLARITHROMYCIN. [Concomitant]
     Active Substance: CLARITHROMYCIN
     Indication: MYCOBACTERIUM KANSASII INFECTION
     Route: 065
  11. CYCLOSPORIN [Suspect]
     Active Substance: CYCLOSPORINE
     Indication: IMMUNOSUPPRESSION
     Dosage: 200 MG, UNK
     Route: 065
     Dates: start: 1995
  12. RIFAMPICIN [Concomitant]
     Active Substance: RIFAMPIN
     Indication: PRODUCT USED FOR UNKNOWN INDICATION
     Route: 065
  13. RIFAMPICIN [Concomitant]
     Active Substance: RIFAMPIN
     Indication: MYCOBACTERIUM KANSASII INFECTION
     Route: 065

REACTIONS (10)
  - Visual acuity reduced [Not Recovered/Not Resolved]
  - Pain [Recovering/Resolving]
  - Swelling [Recovering/Resolving]
  - Tendon rupture [Recovering/Resolving]
  - Optic neuritis [Not Recovered/Not Resolved]
  - Tenosynovitis [Recovering/Resolving]
  - Blindness [Not Recovered/Not Resolved]
  - Mycobacterium kansasii infection [Recovering/Resolving]
  - Musculoskeletal stiffness [Recovering/Resolving]
  - Product use in unapproved indication [Unknown]

NARRATIVE: CASE EVENT DATE: 200812
